FAERS Safety Report 13251580 (Version 5)
Quarter: 2017Q4

REPORT INFORMATION
  Report Type: Report from Study
  Country: None (occurrence: US)
  Receive Date: 20170220
  Receipt Date: 20171003
  Transmission Date: 20180320
  Serious: Yes (Other)
  Sender: FDA-Public Use
  Company Number: US-ABBVIE-17K-163-1876055-00

PATIENT
  Age: 67 Year
  Sex: Female
  Weight: 103.7 kg

DRUGS (2)
  1. HUMIRA [Suspect]
     Active Substance: ADALIMUMAB
     Route: 058
     Dates: start: 2017
  2. HUMIRA [Suspect]
     Active Substance: ADALIMUMAB
     Indication: RHEUMATOID ARTHRITIS
     Route: 058
     Dates: start: 2004, end: 201703

REACTIONS (12)
  - Dizziness [Unknown]
  - Asthma [Unknown]
  - Carpal tunnel syndrome [Recovering/Resolving]
  - Decreased appetite [Unknown]
  - Headache [Unknown]
  - Diverticulitis [Unknown]
  - Influenza [Unknown]
  - Varicose vein [Recovering/Resolving]
  - Hypertension [Unknown]
  - Pyrexia [Unknown]
  - Cataract [Recovered/Resolved]
  - Blood glucose increased [Unknown]

NARRATIVE: CASE EVENT DATE: 2008
